FAERS Safety Report 12571168 (Version 1)
Quarter: 2016Q3

REPORT INFORMATION
  Report Type: Spontaneous
  Country: US (occurrence: US)
  Receive Date: 20160719
  Receipt Date: 20160719
  Transmission Date: 20161109
  Serious: No
  Sender: FDA-Public Use
  Company Number: US-GALDERMA-US15004486

PATIENT
  Age: 33 Year
  Sex: Female

DRUGS (10)
  1. CETAPHIL GENTLE SKIN CLEANSING CLOTHS [Suspect]
     Active Substance: COSMETICS
     Indication: THERAPEUTIC SKIN CARE TOPICAL
     Route: 061
     Dates: start: 2015, end: 2015
  2. CLARITIN [Concomitant]
     Active Substance: LORATADINE
     Indication: SEASONAL ALLERGY
     Route: 048
  3. NEOSALUS (NON-STEROIDAL ANTI-INFLAMMATORY) CREAM [Concomitant]
     Route: 061
  4. PURPOSE CLEANSER [Concomitant]
     Indication: THERAPEUTIC SKIN CARE TOPICAL
     Route: 061
  5. BENADRYL [Concomitant]
     Active Substance: DIPHENHYDRAMINE HYDROCHLORIDE
     Indication: SEASONAL ALLERGY
     Route: 048
  6. ORACEA [Suspect]
     Active Substance: DOXYCYCLINE
     Indication: ECZEMA
     Dosage: 40MG
     Route: 048
     Dates: start: 201504, end: 20150526
  7. ATRAPRO ANTIPURITIC HYDROGEL [Concomitant]
     Indication: PRURITUS
     Route: 061
  8. ATRAPRO ANTIPURITIC HYDROGEL [Concomitant]
     Indication: SKIN BURNING SENSATION
  9. CETAPHIL [Concomitant]
     Active Substance: AVOBENZONE\OCTOCRYLENE\TRICLOSAN
     Indication: THERAPEUTIC SKIN CARE TOPICAL
     Route: 061
  10. UNKNOWN SUNSCREEN WITH ZINC [Concomitant]
     Indication: PROPHYLAXIS AGAINST SOLAR RADIATION
     Route: 061

REACTIONS (5)
  - Dry skin [Recovered/Resolved]
  - Skin burning sensation [Not Recovered/Not Resolved]
  - Rash macular [Not Recovered/Not Resolved]
  - Erythema [Not Recovered/Not Resolved]
  - Rebound effect [Not Recovered/Not Resolved]

NARRATIVE: CASE EVENT DATE: 2015
